FAERS Safety Report 7117352-4 (Version None)
Quarter: 2010Q4

REPORT INFORMATION
  Report Type: 
  Country: None (occurrence: None)
  Receive Date: 20101122
  Receipt Date: 20101119
  Transmission Date: 20110411
  Serious: Yes (Other)
  Sender: FDA-Public Use
  Company Number: BR-ABBOTT-10P-020-0685947-00

PATIENT
  Sex: Female
  Weight: 54 kg

DRUGS (11)
  1. HUMIRA [Suspect]
     Indication: RHEUMATOID ARTHRITIS
     Dosage: 80 MG LOADING DOSE
     Route: 058
  2. HUMIRA [Suspect]
     Route: 058
  3. APRESOLINA [Concomitant]
     Indication: CARDIAC DISORDER
  4. MONOCORDIL [Concomitant]
     Indication: CARDIAC DISORDER
  5. CARVEDILOL [Concomitant]
     Indication: CARDIAC DISORDER
  6. CALCORT [Concomitant]
     Indication: RHEUMATOID ARTHRITIS
  7. INSULIN [Concomitant]
     Indication: DIABETES MELLITUS
  8. CEDUR [Concomitant]
     Indication: PRODUCT USED FOR UNKNOWN INDICATION
  9. ANCORON [Concomitant]
     Indication: PRODUCT USED FOR UNKNOWN INDICATION
  10. ZOCOR [Concomitant]
     Indication: BLOOD CHOLESTEROL ABNORMAL
  11. LEXOTAN [Concomitant]
     Indication: SLEEP DISORDER THERAPY

REACTIONS (3)
  - CHOLELITHIASIS [None]
  - PANCREATITIS ACUTE [None]
  - VASCULAR BYPASS DYSFUNCTION [None]
